FAERS Safety Report 7227178-9 (Version None)
Quarter: 2011Q1

REPORT INFORMATION
  Report Type: 
  Country: None (occurrence: None)
  Receive Date: 20110105
  Receipt Date: 20101223
  Transmission Date: 20110831
  Serious: Yes (Hospitalization, Disabling)
  Sender: FDA-Public Use
  Company Number: ZYD-10-AE-304

PATIENT
  Age: 84 Year
  Sex: Male
  Weight: 86 kg

DRUGS (4)
  1. SIMVACARD (SIMVASTATIN) [Concomitant]
  2. BISOCARD (BISOPROLOL) [Concomitant]
  3. WARFARIN TABLET (ZYDUS) [Suspect]
     Indication: THROMBOSIS PROPHYLAXIS
     Dosage: BID - ORAL
     Route: 048
     Dates: start: 20090724
  4. TANYZ (TAMSULOSIN) [Concomitant]

REACTIONS (3)
  - AMNESIA [None]
  - DISORIENTATION [None]
  - INTERNATIONAL NORMALISED RATIO DECREASED [None]
